FAERS Safety Report 7793405-2 (Version None)
Quarter: 2011Q4

REPORT INFORMATION
  Report Type: 
  Country: None (occurrence: None)
  Receive Date: 20111003
  Receipt Date: 20110620
  Transmission Date: 20120403
  Serious: No
  Sender: FDA-Public Use
  Company Number: US-BAYER-2011-053556

PATIENT
  Sex: Female

DRUGS (1)
  1. AVELOX [Suspect]
     Indication: CHRONIC SINUSITIS
     Dosage: UNK
     Route: 048
     Dates: start: 20110614

REACTIONS (9)
  - DEPRESSION [None]
  - HYPOAESTHESIA [None]
  - PAIN IN JAW [None]
  - PARAESTHESIA [None]
  - ASTHENIA [None]
  - PALPITATIONS [None]
  - DEPRESSED MOOD [None]
  - FEELING ABNORMAL [None]
  - PANIC ATTACK [None]
